FAERS Safety Report 4595529-X (Version None)
Quarter: 2005Q1

REPORT INFORMATION
  Report Type: 
  Country: None (occurrence: None)
  Receive Date: 20050228
  Receipt Date: 20050228
  Transmission Date: 20050727
  Serious: No
  Sender: FDA-Public Use
  Company Number: None

PATIENT
  Age: 42 Year
  Sex: Male
  Weight: 92.9874 kg

DRUGS (3)
  1. VANCOMYCIN [Suspect]
     Indication: ENDOCARDITIS
     Dosage: 1 GRAM IV Q 12 H
     Route: 042
     Dates: start: 20050114
  2. GENTAMICIN [Concomitant]
  3. COUMADIN [Concomitant]

REACTIONS (2)
  - COMA [None]
  - HYPERSENSITIVITY [None]
